FAERS Safety Report 7336536-3 (Version None)
Quarter: 2011Q1

REPORT INFORMATION
  Report Type: 
  Country: None (occurrence: None)
  Receive Date: 20110307
  Receipt Date: 20110224
  Transmission Date: 20110831
  Serious: Yes (Disabling, Other)
  Sender: FDA-Public Use
  Company Number: US-US-EMD SERONO, INC.-7044300

PATIENT
  Sex: Male

DRUGS (1)
  1. REBIF [Suspect]
     Indication: PRODUCT USED FOR UNKNOWN INDICATION
     Route: 058
     Dates: start: 20110224

REACTIONS (4)
  - SPEECH DISORDER [None]
  - INCORRECT DOSE ADMINISTERED [None]
  - MOTOR DYSFUNCTION [None]
  - CONVULSION [None]
